FAERS Safety Report 13035024 (Version 1)
Quarter: 2016Q4

REPORT INFORMATION
  Report Type: Report from Study
  Country: DE (occurrence: DE)
  Receive Date: 20161216
  Receipt Date: 20161216
  Transmission Date: 20170207
  Serious: Yes (Other)
  Sender: FDA-Public Use
  Company Number: DE-JNJFOC-20161208484

PATIENT
  Age: 0 Year
  Sex: Female
  Weight: 4.3 kg

DRUGS (5)
  1. REMICADE [Suspect]
     Active Substance: INFLIXIMAB
     Indication: CROHN^S DISEASE
     Route: 064
     Dates: start: 20151019, end: 20161004
  2. IBUPROFEN. [Suspect]
     Active Substance: IBUPROFEN
     Indication: ARTHRALGIA
     Route: 064
  3. AZATHIOPRIN [Concomitant]
     Active Substance: AZATHIOPRINE
     Route: 065
     Dates: start: 20161018
  4. IBUPROFEN. [Suspect]
     Active Substance: IBUPROFEN
     Route: 064
  5. SALOFALK GR [Concomitant]
     Route: 065
     Dates: start: 20161018

REACTIONS (2)
  - Spine malformation [Unknown]
  - Foetal exposure during pregnancy [Unknown]

NARRATIVE: CASE EVENT DATE: 2015
